FAERS Safety Report 6154626-8 (Version None)
Quarter: 2009Q2

REPORT INFORMATION
  Report Type: 
  Country: None (occurrence: None)
  Receive Date: 20090414
  Receipt Date: 20090406
  Transmission Date: 20091009
  Serious: Yes (Death)
  Sender: FDA-Public Use
  Company Number: US-GILEAD-2009-0021333

PATIENT
  Sex: Female
  Weight: 58.566 kg

DRUGS (24)
  1. LETAIRIS [Suspect]
     Indication: PULMONARY ARTERIAL HYPERTENSION
     Route: 048
     Dates: start: 20070820
  2. NITROSTAT [Concomitant]
  3. CARDIZEM CD [Concomitant]
  4. CLONIDINE [Concomitant]
  5. THEO-DUR [Concomitant]
  6. NASALCROM [Concomitant]
  7. CLONAZEPAM [Concomitant]
  8. DARVOCET [Concomitant]
  9. FOSAMAX [Concomitant]
  10. GUAIFENESIN [Concomitant]
  11. BENADRYL [Concomitant]
  12. CARAFATE [Concomitant]
  13. TUMS CALCIUM [Concomitant]
  14. SAM-E [Concomitant]
  15. CO Q-10 [Concomitant]
  16. AF-ASPIRIN [Concomitant]
  17. ICAPS [Concomitant]
  18. CENTRUM PERFORMANCE [Concomitant]
  19. STRESS FORMULA [Concomitant]
  20. GLUCOSAMINE CHONDROITIN [Concomitant]
  21. VITAMIN E [Concomitant]
  22. RED YEAST RICE [Concomitant]
  23. AZOPT [Concomitant]
  24. VAGIFEM [Concomitant]

REACTIONS (1)
  - DEATH [None]
